FAERS Safety Report 14854138 (Version 1)
Quarter: 2018Q2

REPORT INFORMATION
  Report Type: Spontaneous
  Country: FR (occurrence: FR)
  Receive Date: 20180507
  Receipt Date: 20180507
  Transmission Date: 20180711
  Serious: Yes (Hospitalization)
  Sender: FDA-Public Use
  Company Number: FR-SA-2018SA118922

PATIENT
  Age: 70 Year
  Sex: Male
  Weight: 65 kg

DRUGS (14)
  1. ARAVA [Suspect]
     Active Substance: LEFLUNOMIDE
     Indication: RHEUMATOID ARTHRITIS
     Route: 048
     Dates: start: 201501, end: 201802
  2. CELESTENE [Concomitant]
     Active Substance: BETAMETHASONE
     Route: 048
  3. AERIUS [Concomitant]
     Active Substance: DESLORATADINE
     Route: 048
  4. NEBCINE [Concomitant]
     Active Substance: TOBRAMYCIN
     Route: 055
  5. ZELITREX [Concomitant]
     Active Substance: VALACYCLOVIR HYDROCHLORIDE
     Route: 048
  6. METFORMINE [Concomitant]
     Active Substance: METFORMIN HYDROCHLORIDE
     Route: 048
  7. FEROGRAD-500 [Concomitant]
     Route: 048
     Dates: start: 201709
  8. AZOPT [Concomitant]
     Active Substance: BRINZOLAMIDE
     Route: 047
  9. SERETIDE [Concomitant]
     Active Substance: FLUTICASONE PROPIONATE\SALMETEROL XINAFOATE
     Route: 055
  10. PREVISCAN (FLUINDIONE) [Concomitant]
     Active Substance: FLUINDIONE
  11. COVERAM [Concomitant]
     Active Substance: AMLODIPINE\PERINDOPRIL
     Route: 048
  12. ORENCIA [Suspect]
     Active Substance: ABATACEPT
     Indication: RHEUMATOID ARTHRITIS
     Route: 058
     Dates: start: 201501, end: 201802
  13. COMBIGAN [Concomitant]
     Active Substance: BRIMONIDINE TARTRATE\TIMOLOL MALEATE
     Route: 047
  14. BRICANYL [Concomitant]
     Active Substance: TERBUTALINE SULFATE
     Route: 055

REACTIONS (1)
  - Pulmonary veno-occlusive disease [Not Recovered/Not Resolved]

NARRATIVE: CASE EVENT DATE: 20180301
